FAERS Safety Report 6108422-8 (Version None)
Quarter: 2009Q1

REPORT INFORMATION
  Report Type: 
  Country: None (occurrence: None)
  Receive Date: 20090309
  Receipt Date: 20090227
  Transmission Date: 20090719
  Serious: Yes (Hospitalization)
  Sender: FDA-Public Use
  Company Number: KR-PFIZER INC-2008017411

PATIENT

DRUGS (34)
  1. BLINDED *PLACEBO [Suspect]
     Indication: COLORECTAL CANCER
     Dosage: UNK
     Route: 048
     Dates: start: 20080109, end: 20080205
  2. BLINDED SUNITINIB MALATE [Suspect]
     Indication: COLORECTAL CANCER
     Dosage: UNK
     Route: 048
     Dates: start: 20080109, end: 20080205
  3. IRINOTECAN HYDROCHLORIDE [Suspect]
     Indication: COLORECTAL CANCER
     Dosage: 180 MG/M2, EVERY 3 WEEKS
     Route: 042
     Dates: start: 20080109
  4. FLUOROURACIL [Suspect]
     Indication: COLORECTAL CANCER
     Dosage: 400 MG/M2, EVERY 3 WEEKS
     Route: 040
     Dates: start: 20080109
  5. FLUOROURACIL [Suspect]
     Dosage: 2400 MG/M2, EVERY 3 WEEKS
     Route: 041
     Dates: start: 20080109
  6. LEUCOVORIN CALCIUM [Suspect]
     Indication: COLORECTAL CANCER
     Dosage: 400 MG/M2, EVERY 3 WEEKS
     Route: 042
     Dates: start: 20080109
  7. VOGLIBOSE [Concomitant]
     Dosage: 0.6 MG, 1X/DAY
     Route: 048
     Dates: start: 19830101
  8. GLICLAZIDE [Concomitant]
     Dosage: 240 MG, 1X/DAY
     Route: 048
     Dates: start: 19830101
  9. LINOLEIC ACID [Concomitant]
     Dosage: 80 MG, 1X/DAY
     Route: 048
     Dates: start: 20061201
  10. MECOBALAMIN [Concomitant]
     Dosage: 1 MG, 1X/DAY
     Route: 048
     Dates: start: 20061201
  11. REBAMIPIDE [Concomitant]
     Dosage: 200 MG, 1X/DAY
     Route: 048
     Dates: start: 20061201
  12. GINKGO BILOBA EXTRACT [Concomitant]
     Dosage: 160 MG, 1X/DAY
     Route: 048
     Dates: start: 20061201
  13. ASPIRIN [Concomitant]
     Dosage: 100 MG, 1X/DAY
     Route: 048
     Dates: start: 20061201
  14. CLOPIDOGREL [Concomitant]
     Dosage: 75 MG, 1X/DAY
     Route: 048
     Dates: start: 20061201
  15. VALSARTAN [Concomitant]
     Dosage: 80 MG, 1X/DAY
     Route: 048
     Dates: start: 20061201
  16. GABAPENTIN [Concomitant]
     Dosage: 800 MG, 1X/DAY
     Route: 048
     Dates: start: 20061201
  17. METOCLOPRAMIDE HYDROCHLORIDE [Concomitant]
     Dosage: 40 MG, 1X/DAY
     Route: 042
     Dates: start: 20080220, end: 20080222
  18. ONDANSETRON HYDROCHLORIDE [Concomitant]
     Dosage: 1.6 MG, 1X/DAY
     Route: 048
     Dates: start: 20080220, end: 20080222
  19. HARTMANN [Concomitant]
     Dosage: 500 MG, 1X/DAY
     Route: 042
     Dates: start: 20080220, end: 20080222
  20. SUCRALFATE [Concomitant]
     Dosage: 60 MG, 1X/DAY
     Route: 048
     Dates: start: 20080220, end: 20080222
  21. CALCIUM POLYSTYRENE SULFONATE [Concomitant]
     Dosage: 10 MG, 1X/DAY
     Route: 048
     Dates: start: 20080220, end: 20080222
  22. DEXAMETHASONE [Concomitant]
     Dosage: 5 MG, 1X/DAY
     Route: 042
     Dates: start: 20080220, end: 20080221
  23. FEXOFENADINE [Concomitant]
     Dosage: 1 TABLET, 1X/DAY
     Route: 048
     Dates: start: 20080220, end: 20080220
  24. CARNITINE HYDROCHLORIDE [Concomitant]
     Dosage: 100 MG, 1X/DAY
  25. CIMETIDINE [Concomitant]
     Dosage: 600 MG, 1X/DAY
     Route: 048
     Dates: start: 20080220, end: 20080222
  26. EPERISONE HYDROCHLORIDE [Concomitant]
     Dosage: 100 MG, 1X/DAY
     Route: 048
     Dates: start: 20080211, end: 20080219
  27. OXYTETRACYCLINE HYDROCHLORIDE [Concomitant]
     Dosage: 250 MG, 1X/DAY
     Route: 048
     Dates: start: 20080210, end: 20080210
  28. BETHANECHOL [Concomitant]
     Dosage: 25 MG, 1X/DAY
     Route: 048
     Dates: start: 20080210, end: 20080210
  29. FINASTERIDE [Concomitant]
     Dosage: 5 MG, 1X/DAY
     Route: 048
     Dates: start: 20080210, end: 20080210
  30. VITIS VINIFERA EXTRACT [Concomitant]
     Dosage: 100 MG, 1X/DAY
     Route: 048
     Dates: start: 20080125, end: 20080219
  31. NICERGOLINE [Concomitant]
     Dosage: 20 MG, 1X/DAY
     Route: 048
     Dates: start: 20080125, end: 20080219
  32. VACCINIUM MYRTILLUS [Concomitant]
     Dosage: 170 MG, 3X/DAY
     Route: 048
     Dates: start: 19830101
  33. METFORMIN HYDROCHLORIDE [Concomitant]
     Dosage: 1000 MG, 1X/DAY
     Route: 048
     Dates: start: 19830101
  34. OX BILE EXTRACT [Concomitant]
     Dosage: 50 MG, 1X/DAY

REACTIONS (1)
  - ACUTE MYOCARDIAL INFARCTION [None]
